FAERS Safety Report 15181874 (Version 1)
Quarter: 2018Q3

REPORT INFORMATION
  Report Type: Spontaneous
  Country: DK (occurrence: DK)
  Receive Date: 20180723
  Receipt Date: 20180723
  Transmission Date: 20181010
  Serious: Yes (Death, Life-Threatening, Hospitalization, Other)
  Sender: FDA-Public Use
  Company Number: PHHY2013DK176436

PATIENT
  Age: 91 Year
  Sex: Female

DRUGS (1)
  1. METHOTREXATE. [Suspect]
     Active Substance: METHOTREXATE
     Indication: PRODUCT USED FOR UNKNOWN INDICATION
     Dosage: 10 MG, QD
     Route: 065

REACTIONS (7)
  - Pancytopenia [Unknown]
  - Mucosal inflammation [Unknown]
  - Septic shock [Fatal]
  - Thrombocytopenia [Unknown]
  - Toxicity to various agents [Unknown]
  - Neutropenia [Unknown]
  - Inappropriate schedule of drug administration [Fatal]
